FAERS Safety Report 23167857 (Version 1)
Quarter: 2023Q4

REPORT INFORMATION
  Report Type: Spontaneous
  Country: FR (occurrence: FR)
  Receive Date: 20231109
  Receipt Date: 20231109
  Transmission Date: 20240110
  Serious: Yes (Other)
  Sender: FDA-Public Use
  Company Number: None

PATIENT
  Age: 25 Year
  Sex: Female

DRUGS (1)
  1. TRAMADOL [Suspect]
     Active Substance: TRAMADOL\TRAMADOL HYDROCHLORIDE
     Indication: Product used for unknown indication
     Dosage: 150 MILLIGRAM, Q8H
     Route: 048
     Dates: start: 20230610

REACTIONS (2)
  - Drug use disorder [Recovering/Resolving]
  - Menstrual disorder [Unknown]

NARRATIVE: CASE EVENT DATE: 20230610
